FAERS Safety Report 4374001-6 (Version None)
Quarter: 2004Q2

REPORT INFORMATION
  Report Type: 
  Country: None (occurrence: None)
  Receive Date: 20040601
  Receipt Date: 20040213
  Transmission Date: 20050107
  Serious: No
  Sender: FDA-Public Use
  Company Number: MPS1-10172

PATIENT
  Age: 10 Month
  Sex: Male
  Weight: 10 kg

DRUGS (3)
  1. ALDURAZYME [Suspect]
     Indication: MUCOPOLYSACCHARIDOSIS I
     Dosage: 0.58 MG/KG QWK IV
     Route: 042
     Dates: start: 20040210
  2. BENADRYL [Concomitant]
  3. TYLENOL [Concomitant]

REACTIONS (2)
  - PYREXIA [None]
  - VOMITING [None]
